FAERS Safety Report 9565634 (Version 1)
Quarter: 2013Q3

REPORT INFORMATION
  Report Type: Spontaneous
  Country: CH (occurrence: CH)
  Receive Date: 20130930
  Receipt Date: 20130930
  Transmission Date: 20140515
  Serious: Yes (Other)
  Sender: FDA-Public Use
  Company Number: CH-CELGENEUS-151-20785-13092501

PATIENT
  Sex: Female

DRUGS (7)
  1. THALIDOMIDE [Suspect]
     Indication: PLASMA CELL MYELOMA
     Route: 048
     Dates: start: 20060809, end: 20070109
  2. THALIDOMIDE [Suspect]
     Route: 048
     Dates: start: 20070110, end: 20070223
  3. CYCLOPHOSPHAMIDE [Concomitant]
     Indication: PLASMA CELL MYELOMA
     Route: 065
     Dates: start: 20070110, end: 20070223
  4. CYCLOPHOSPHAMIDE [Concomitant]
     Route: 065
     Dates: start: 20040116, end: 20040116
  5. CYCLOPHOSPHAMIDE [Concomitant]
     Route: 065
     Dates: start: 20110817, end: 20111027
  6. PREDNISOLON [Concomitant]
     Indication: PLASMA CELL MYELOMA
     Route: 065
     Dates: start: 20070110, end: 20070223
  7. ZOLEDRONIC ACID [Concomitant]
     Indication: PRODUCT USED FOR UNKNOWN INDICATION
     Route: 065
     Dates: start: 200310

REACTIONS (3)
  - Spinal compression fracture [Unknown]
  - Neutropenia [Unknown]
  - Plasma cell myeloma [Unknown]
